FAERS Safety Report 8305569-2 (Version None)
Quarter: 2012Q2

REPORT INFORMATION
  Report Type: 
  Country: None (occurrence: None)
  Receive Date: 20120423
  Receipt Date: 20120416
  Transmission Date: 20120825
  Serious: Yes (Other)
  Sender: FDA-Public Use
  Company Number: US-US-EMD SERONO, INC.-7115449

PATIENT
  Sex: Female

DRUGS (2)
  1. REBIF [Suspect]
     Route: 057
     Dates: start: 20120402
  2. REBIF [Suspect]
     Indication: PRODUCT USED FOR UNKNOWN INDICATION
     Route: 058
     Dates: end: 20070101

REACTIONS (3)
  - INJECTION SITE ERYTHEMA [None]
  - PNEUMONIA PRIMARY ATYPICAL [None]
  - INFLUENZA LIKE ILLNESS [None]
